FAERS Safety Report 8135350-9 (Version None)
Quarter: 2012Q1

REPORT INFORMATION
  Report Type: 
  Country: None (occurrence: None)
  Receive Date: 20120214
  Receipt Date: 20120207
  Transmission Date: 20120608
  Serious: Yes (Hospitalization)
  Sender: FDA-Public Use
  Company Number: US-ABBOTT-09P-163-0603894-00

PATIENT
  Sex: Male
  Weight: 74.8 kg

DRUGS (10)
  1. SINGLE-BLIND PLACEBO [Suspect]
     Indication: MAJOR DEPRESSION
     Dates: start: 20090818, end: 20090905
  2. MULTI-VITAMIN [Concomitant]
     Indication: ROUTINE HEALTH MAINTENANCE
     Route: 048
     Dates: start: 20080101
  3. CYMBALTA [Suspect]
     Indication: MAJOR DEPRESSION
     Route: 048
     Dates: start: 20090819, end: 20090905
  4. MAGNESIUM HYDROXIDE TAB [Concomitant]
     Indication: DYSPEPSIA
     Route: 048
     Dates: start: 20090101
  5. ALCOHOL [Suspect]
     Indication: PRODUCT USED FOR UNKNOWN INDICATION
     Route: 048
     Dates: start: 20090904, end: 20090916
  6. IBUPROFEN [Concomitant]
     Indication: HEADACHE
  7. IBUPROFEN [Concomitant]
     Indication: BACK PAIN
     Route: 048
     Dates: start: 19890101
  8. ACETAMINOPHEN [Concomitant]
     Indication: HEADACHE
  9. VICODIN [Suspect]
     Indication: BACK PAIN
     Route: 048
  10. ACETAMINOPHEN [Concomitant]
     Indication: BACK PAIN
     Dosage: 1 - 2 DOSAGE FORMS
     Route: 048
     Dates: start: 19890101

REACTIONS (3)
  - SUICIDAL IDEATION [None]
  - HOMICIDAL IDEATION [None]
  - ALCOHOL ABUSE [None]
